FAERS Safety Report 5198432-X (Version None)
Quarter: 2007Q1

REPORT INFORMATION
  Report Type: 
  Country: None (occurrence: None)
  Receive Date: 20070104
  Receipt Date: 20061225
  Transmission Date: 20070707
  Serious: Yes (Hospitalization)
  Sender: FDA-Public Use
  Company Number: 2006AP06181

PATIENT
  Age: 65 Year
  Sex: Male

DRUGS (1)
  1. DIPRIVAN [Suspect]
     Indication: SEDATION
     Route: 042

REACTIONS (2)
  - BLOOD UREA INCREASED [None]
  - DELAYED RECOVERY FROM ANAESTHESIA [None]
